FAERS Safety Report 25381474 (Version 1)
Quarter: 2025Q2

REPORT INFORMATION
  Report Type: Report from Study
  Country: US (occurrence: US)
  Receive Date: 20250530
  Receipt Date: 20250530
  Transmission Date: 20250717
  Serious: No
  Sender: MALLINCKRODT
  Company Number: US-MALLINCKRODT-MNK202501067

PATIENT
  Sex: Female

DRUGS (1)
  1. CORTICOTROPIN [Suspect]
     Active Substance: CORTICOTROPIN
     Indication: Sarcoidosis
     Dates: start: 2018

REACTIONS (5)
  - Mobility decreased [Unknown]
  - Somnolence [Unknown]
  - Asthenia [Unknown]
  - Pyrexia [Unknown]
  - Product dose omission issue [Unknown]
